FAERS Safety Report 9823370 (Version 2)
Quarter: 2014Q1

REPORT INFORMATION
  Report Type: Spontaneous
  Country: US (occurrence: US)
  Receive Date: 20140116
  Receipt Date: 20140116
  Transmission Date: 20141002
  Serious: No
  Sender: FDA-Public Use
  Company Number: US-GILEAD-2011-0035125

PATIENT
  Age: 62 Year
  Sex: Female

DRUGS (3)
  1. LETAIRIS [Suspect]
     Indication: PULMONARY HYPERTENSION
     Route: 048
     Dates: start: 20101111
  2. LETAIRIS [Suspect]
     Indication: DIASTOLIC DYSFUNCTION
  3. REMODULIN [Concomitant]

REACTIONS (2)
  - Pulmonary arterial hypertension [Unknown]
  - Drug ineffective [Unknown]
